FAERS Safety Report 10481604 (Version 1)
Quarter: 2014Q3

REPORT INFORMATION
  Report Type: Report from Study
  Country: EG (occurrence: EG)
  Receive Date: 20140929
  Receipt Date: 20140929
  Transmission Date: 20150326
  Serious: Yes (Hospitalization, Other)
  Sender: FDA-Public Use
  Company Number: EG-SA-2014SA131690

PATIENT
  Age: 9 Year
  Sex: Female

DRUGS (3)
  1. LANTUS [Suspect]
     Active Substance: INSULIN GLARGINE
     Route: 058
  2. LANTUS [Suspect]
     Active Substance: INSULIN GLARGINE
     Route: 058
     Dates: start: 2012
  3. ACTRAPID [Suspect]
     Active Substance: INSULIN HUMAN
     Dosage: DOSE- 10-10-7
     Route: 058
     Dates: start: 2012

REACTIONS (3)
  - Ketoacidosis [Recovered/Resolved]
  - Hyperglycaemia [Not Recovered/Not Resolved]
  - Ketoacidosis [Recovered/Resolved]

NARRATIVE: CASE EVENT DATE: 20140916
